FAERS Safety Report 18109465 (Version 1)
Quarter: 2020Q3

REPORT INFORMATION
  Report Type: Spontaneous
  Country: DE (occurrence: DE)
  Receive Date: 20200804
  Receipt Date: 20200804
  Transmission Date: 20201103
  Serious: Yes (Other)
  Sender: FDA-Public Use
  Company Number: DE-MSNLABS-2020MSNSPO00177

PATIENT

DRUGS (5)
  1. BISOPROLOL [Suspect]
     Active Substance: BISOPROLOL
     Dosage: 1 TABLET IN THE EVENING
     Route: 065
  2. MILNANEURAX 50 MG [Suspect]
     Active Substance: MILNACIPRAN HYDROCHLORIDE
     Dosage: 2X 50 MG
     Route: 048
  3. ATORVASTATIN TABLETS 20MG [Suspect]
     Active Substance: ATORVASTATIN
     Indication: BLOOD CHOLESTEROL
     Route: 048
     Dates: start: 202001
  4. BISOPROLOL [Suspect]
     Active Substance: BISOPROLOL
     Indication: PRODUCT USED FOR UNKNOWN INDICATION
     Dosage: 1 TABLET IN THE MORNING + 1 TABLET IN THE EVENING
     Route: 065
  5. MILNANEURAX 50 MG [Suspect]
     Active Substance: MILNACIPRAN HYDROCHLORIDE
     Indication: DEPRESSION
     Dosage: 25 MG 3 TIMES A DAY
     Route: 048

REACTIONS (8)
  - Chills [None]
  - Drug ineffective [Unknown]
  - Malaise [None]
  - Hot flush [None]
  - Myocardial infarction [None]
  - Dyspnoea [None]
  - Fatigue [None]
  - Agitation [None]

NARRATIVE: CASE EVENT DATE: 2020
